FAERS Safety Report 4850886-1 (Version None)
Quarter: 2005Q4

REPORT INFORMATION
  Report Type: 
  Country: None (occurrence: None)
  Receive Date: 20051212
  Receipt Date: 20051205
  Transmission Date: 20060501
  Serious: Yes (Other)
  Sender: FDA-Public Use
  Company Number: US-GLAXOSMITHKLINE-A0584674A

PATIENT
  Sex: Female

DRUGS (7)
  1. AVANDAMET [Suspect]
     Dosage: 1TAB TWICE PER DAY
     Route: 048
  2. GLYBURIDE [Concomitant]
  3. CARDIZEM [Concomitant]
  4. QUINAPRIL [Concomitant]
  5. LOVASTATIN [Concomitant]
  6. LEVOXACIN [Concomitant]
  7. ASPIRIN [Concomitant]

REACTIONS (12)
  - BLOOD GLUCOSE DECREASED [None]
  - CONFUSIONAL STATE [None]
  - DIZZINESS [None]
  - ERYTHEMA [None]
  - FATIGUE [None]
  - FLUID RETENTION [None]
  - HYPERHIDROSIS [None]
  - HYPERPHAGIA [None]
  - LACTIC ACIDOSIS [None]
  - SOMNOLENCE [None]
  - TREMOR [None]
  - WEIGHT INCREASED [None]
